FAERS Safety Report 7437436-0 (Version None)
Quarter: 2011Q2

REPORT INFORMATION
  Report Type: 
  Country: None (occurrence: None)
  Receive Date: 20110426
  Receipt Date: 20100507
  Transmission Date: 20111010
  Serious: No
  Sender: FDA-Public Use
  Company Number: US-PFIZER INC-2010058839

PATIENT
  Sex: Female
  Weight: 71.655 kg

DRUGS (6)
  1. TOPROL-XL [Concomitant]
     Indication: CARDIOMYOPATHY
     Dosage: 50 MG, 1X/DAY
     Route: 048
  2. ESTRING [Suspect]
     Dosage: UNK
     Route: 067
     Dates: start: 20100306
  3. PLAQUENIL [Concomitant]
     Indication: RHEUMATOID ARTHRITIS
     Dosage: 200 MG, 1X/DAY
     Route: 048
  4. ESTRING [Suspect]
     Indication: VULVOVAGINAL DRYNESS
     Dosage: UNK
     Route: 067
     Dates: start: 20090601
  5. ARAVA [Concomitant]
     Indication: RHEUMATOID ARTHRITIS
     Dosage: 20 MG, 1X/DAY
     Route: 048
  6. PREDNISONE [Concomitant]
     Indication: RHEUMATOID ARTHRITIS
     Dosage: 5 MG, 1X/DAY
     Route: 048

REACTIONS (3)
  - VULVOVAGINAL DRYNESS [None]
  - DRUG INEFFECTIVE [None]
  - VULVOVAGINAL DISCOMFORT [None]
